FAERS Safety Report 5786901-0 (Version None)
Quarter: 2008Q2

REPORT INFORMATION
  Report Type: 
  Country: None (occurrence: None)
  Receive Date: 20080625
  Receipt Date: 20020115
  Transmission Date: 20081010
  Serious: Yes (Death, Hospitalization)
  Sender: FDA-Public Use
  Company Number: US-JNJFOC-20080604159

PATIENT
  Sex: Female
  Weight: 68 kg

DRUGS (4)
  1. DOXORUBICIN HCL [Suspect]
     Indication: OVARIAN CANCER
     Route: 042
  2. TAXOL [Suspect]
     Route: 065
  3. TAXOL [Suspect]
     Indication: OVARIAN CANCER
     Route: 065
  4. CISPLATIN [Suspect]
     Indication: OVARIAN CANCER
     Route: 065

REACTIONS (3)
  - NEUTROPENIA [None]
  - PNEUMONIA ASPIRATION [None]
  - RENAL FAILURE [None]
